FAERS Safety Report 23472887 (Version 5)
Quarter: 2024Q2

REPORT INFORMATION
  Report Type: Spontaneous
  Country: US (occurrence: US)
  Receive Date: 20240203
  Receipt Date: 20240429
  Transmission Date: 20240716
  Serious: Yes (Other)
  Sender: FDA-Public Use
  Company Number: US-HORIZON THERAPEUTICS-HZN-2024-000440

PATIENT

DRUGS (9)
  1. TEPEZZA [Suspect]
     Active Substance: TEPROTUMUMAB-TRBW
     Indication: Endocrine ophthalmopathy
     Dosage: 1ST INFUSION
     Route: 042
     Dates: start: 20230822
  2. TEPEZZA [Suspect]
     Active Substance: TEPROTUMUMAB-TRBW
     Dosage: 7TH INFUSION
     Route: 042
  3. TIROSINT [Concomitant]
     Active Substance: LEVOTHYROXINE SODIUM
     Dosage: 125 UG
     Route: 048
     Dates: start: 202205
  4. ALLOPURINOL [Concomitant]
     Active Substance: ALLOPURINOL
     Dosage: 300 MG
     Route: 048
  5. TENORMIN [Concomitant]
     Active Substance: ATENOLOL
     Dosage: 25 MG
     Route: 048
  6. RESTASIS [Concomitant]
     Active Substance: CYCLOSPORINE
     Dosage: 1 DROP, BID
     Route: 047
  7. TAPAZOLE [Concomitant]
     Active Substance: METHIMAZOLE
     Dosage: 30 MG
     Route: 048
  8. PRAVACHOL [Concomitant]
     Active Substance: PRAVASTATIN SODIUM
     Dosage: 20 MG, QD
     Route: 048
  9. SELENIUM [Concomitant]
     Active Substance: SELENIUM
     Route: 048

REACTIONS (18)
  - Punctate keratitis [Unknown]
  - Dry eye [Not Recovered/Not Resolved]
  - Eye irritation [Not Recovered/Not Resolved]
  - Ocular hyperaemia [Not Recovered/Not Resolved]
  - Tremor [Not Recovered/Not Resolved]
  - Skin odour abnormal [Recovered/Resolved]
  - Ageusia [Not Recovered/Not Resolved]
  - Exophthalmos [Not Recovered/Not Resolved]
  - Conjunctival hyperaemia [Unknown]
  - Eyelid retraction [Not Recovered/Not Resolved]
  - Eye pain [Unknown]
  - Eyelid ptosis [Unknown]
  - Libido decreased [Recovering/Resolving]
  - Sperm concentration decreased [Recovering/Resolving]
  - Onychoclasis [Unknown]
  - Alopecia [Not Recovered/Not Resolved]
  - Hypoacusis [Unknown]
  - Muscle spasms [Not Recovered/Not Resolved]
